FAERS Safety Report 6719786-6 (Version None)
Quarter: 2010Q2

REPORT INFORMATION
  Report Type: 
  Country: None (occurrence: None)
  Receive Date: 20100511
  Receipt Date: 20100506
  Transmission Date: 20101027
  Serious: Yes (Other)
  Sender: FDA-Public Use
  Company Number: B0651858A

PATIENT
  Sex: Male

DRUGS (4)
  1. PAXIL [Suspect]
     Indication: DEPRESSION
     Dosage: 40MG PER DAY
     Route: 048
     Dates: end: 20100413
  2. DIAZEPAM [Concomitant]
     Dosage: 4MG PER DAY
     Route: 065
     Dates: end: 20100413
  3. UNKNOWN DRUG [Concomitant]
     Dosage: 5MG PER DAY
     Route: 048
  4. SORENTMIN [Concomitant]
     Dosage: .25MG PER DAY
     Route: 048
     Dates: end: 20100420

REACTIONS (2)
  - DELIRIUM [None]
  - DRUG WITHDRAWAL SYNDROME [None]
